APPROVED DRUG PRODUCT: PYRIDOSTIGMINE BROMIDE
Active Ingredient: PYRIDOSTIGMINE BROMIDE
Strength: 60MG
Dosage Form/Route: TABLET;ORAL
Application: A040512 | Product #001 | TE Code: AB
Applicant: ANI PHARMACEUTICALS INC
Approved: Oct 8, 2003 | RLD: No | RS: No | Type: RX